FAERS Safety Report 15084541 (Version 1)
Quarter: 2018Q2

REPORT INFORMATION
  Report Type: Report from Study
  Country: None (occurrence: DE)
  Receive Date: 20180628
  Receipt Date: 20180628
  Transmission Date: 20180711
  Serious: Yes (Hospitalization)
  Sender: FDA-Public Use
  Company Number: DE-BAUSCH-BL-2018-017770

PATIENT
  Age: 73 Year
  Sex: Male
  Weight: 88 kg

DRUGS (20)
  1. REVLIMID [Suspect]
     Active Substance: LENALIDOMIDE
     Route: 048
     Dates: start: 20170807, end: 20170827
  2. ZOLEDRONSAURE [Concomitant]
     Indication: PROPHYLAXIS
     Dosage: MONTHLY
     Route: 041
     Dates: start: 20170515
  3. PHENPROCOUMON [Concomitant]
     Active Substance: PHENPROCOUMON
     Indication: ARRHYTHMIA
     Route: 048
     Dates: start: 2007, end: 20170801
  4. HYDROMORPHONE [Concomitant]
     Active Substance: HYDROMORPHONE
     Indication: ANAEMIA
     Route: 048
     Dates: start: 20170413
  5. TORASEMID [Concomitant]
     Active Substance: TORSEMIDE
     Indication: ARRHYTHMIA
     Route: 048
  6. ALLOPURINOL. [Concomitant]
     Active Substance: ALLOPURINOL
     Indication: PROPHYLAXIS
     Route: 048
  7. ASS-RATIOPHARM [Concomitant]
     Active Substance: ASPIRIN
     Indication: PROPHYLAXIS
     Route: 048
     Dates: start: 20170503
  8. TELMISARTAN. [Concomitant]
     Active Substance: TELMISARTAN
     Indication: ARRHYTHMIA
     Route: 048
  9. DIGITOXIN [Concomitant]
     Active Substance: DIGITOXIN
     Indication: ARRHYTHMIA
     Route: 048
  10. PANTOPRAZOL BETA [Concomitant]
     Indication: PROPHYLAXIS
     Route: 048
     Dates: start: 20170413
  11. REVLIMID [Suspect]
     Active Substance: LENALIDOMIDE
     Route: 048
     Dates: start: 20170504, end: 20170705
  12. BISOPROLOL [Concomitant]
     Active Substance: BISOPROLOL
     Indication: ARRHYTHMIA
     Route: 048
  13. REVLIMID [Suspect]
     Active Substance: LENALIDOMIDE
     Indication: PLASMA CELL MYELOMA
     Route: 048
     Dates: start: 20170331, end: 20170420
  14. COTRIMOXAZOLE [Concomitant]
     Active Substance: SULFAMETHOXAZOLE\TRIMETHOPRIM
     Indication: PROPHYLAXIS
     Route: 048
     Dates: start: 20170503, end: 20170804
  15. LANTUS [Concomitant]
     Active Substance: INSULIN GLARGINE
     Indication: TYPE 2 DIABETES MELLITUS
     Dosage: 6 IE
     Route: 058
  16. DEXAMETHASONE. [Suspect]
     Active Substance: DEXAMETHASONE
     Indication: PLASMA CELL MYELOMA
     Route: 065
     Dates: start: 20170331, end: 20170706
  17. METAMIZOLE [Concomitant]
     Active Substance: METAMIZOLE
     Indication: TUMOUR PAIN
     Dosage: 500 MILLIGRAM
     Route: 048
     Dates: start: 20170413
  18. BUDESONID EASYHALER [Concomitant]
     Active Substance: BUDESONIDE
     Indication: EMPHYSEMA
     Route: 055
  19. FUROSEMIDE. [Concomitant]
     Active Substance: FUROSEMIDE
     Indication: CARDIAC FAILURE
     Route: 048
  20. INNOHEP [Concomitant]
     Active Substance: TINZAPARIN SODIUM
     Indication: PROPHYLAXIS
     Dosage: .0467 MILLILITER
     Route: 058
     Dates: start: 20170515, end: 20170529

REACTIONS (2)
  - Leukopenia [Not Recovered/Not Resolved]
  - Cardiac failure [Not Recovered/Not Resolved]

NARRATIVE: CASE EVENT DATE: 20170719
